FAERS Safety Report 14726437 (Version 1)
Quarter: 2018Q2

REPORT INFORMATION
  Report Type: Spontaneous
  Country: US (occurrence: US)
  Receive Date: 20180406
  Receipt Date: 20180406
  Transmission Date: 20180711
  Serious: No
  Sender: FDA-Public Use
  Company Number: US-ASTRAZENECA-2018SE32009

PATIENT
  Sex: Male
  Weight: 93 kg

DRUGS (7)
  1. ASPIRIN. [Concomitant]
     Active Substance: ASPIRIN
     Dosage: AS REQUIRED
     Route: 048
  2. CRESTOR [Suspect]
     Active Substance: ROSUVASTATIN CALCIUM
     Indication: LOW DENSITY LIPOPROTEIN INCREASED
     Route: 048
     Dates: start: 2011
  3. CRESTOR [Suspect]
     Active Substance: ROSUVASTATIN CALCIUM
     Indication: LOW DENSITY LIPOPROTEIN INCREASED
     Route: 048
  4. CRESTOR [Suspect]
     Active Substance: ROSUVASTATIN CALCIUM
     Indication: LOW DENSITY LIPOPROTEIN INCREASED
     Dosage: CRESTOR 2.5 MG WEEKLY BY MOUTH ON 25APR2017,THEN THE DOSE WAS ADJUSTED TO EVERY TWO WEEKS, THEN T...
     Route: 048
     Dates: start: 20170425
  5. IBUPROFEN. [Concomitant]
     Active Substance: IBUPROFEN
     Dosage: AS REQUIRED
     Route: 048
  6. TRICOR [Concomitant]
     Active Substance: FENOFIBRATE
  7. ZETIA [Concomitant]
     Active Substance: EZETIMIBE

REACTIONS (11)
  - Musculoskeletal disorder [Unknown]
  - Myalgia [Unknown]
  - Muscle spasms [Unknown]
  - Arthralgia [Unknown]
  - Off label use [Unknown]
  - Musculoskeletal discomfort [Unknown]
  - Gastrointestinal disorder [Unknown]
  - Drug administration error [Unknown]
  - Motor dysfunction [Unknown]
  - Drug intolerance [Unknown]
  - Low density lipoprotein abnormal [Unknown]
